FAERS Safety Report 7442902-8 (Version None)
Quarter: 2011Q2

REPORT INFORMATION
  Report Type: 
  Country: None (occurrence: None)
  Receive Date: 20110419
  Receipt Date: 20110405
  Transmission Date: 20111010
  Serious: Yes (Other)
  Sender: FDA-Public Use
  Company Number: 030580

PATIENT
  Age: 74 Year
  Sex: Female

DRUGS (3)
  1. KEPPRA [Suspect]
     Indication: EPILEPSY
     Dosage: 250 MG BID ORAL, 500 MG BID ORAL
     Route: 048
     Dates: start: 20110315, end: 20110321
  2. KEPPRA [Suspect]
     Indication: EPILEPSY
     Dosage: 250 MG BID ORAL, 500 MG BID ORAL
     Route: 048
     Dates: start: 20110322, end: 20110405
  3. DEPAKENE [Concomitant]

REACTIONS (1)
  - RASH [None]
